FAERS Safety Report 5361980-3 (Version None)
Quarter: 2007Q2

REPORT INFORMATION
  Report Type: 
  Country: None (occurrence: None)
  Receive Date: 20070619
  Receipt Date: 20070605
  Transmission Date: 20071010
  Serious: Yes (Hospitalization, Other)
  Sender: FDA-Public Use
  Company Number: US-ELI_LILLY_AND_COMPANY-US200706000875

PATIENT
  Age: 81 Year
  Sex: Female

DRUGS (1)
  1. FORTEO [Suspect]
     Dosage: UNK, UNK

REACTIONS (6)
  - ARTHRITIS [None]
  - CHEST PAIN [None]
  - COLITIS [None]
  - COLON CANCER [None]
  - HYPERTENSION [None]
  - IRRITABLE BOWEL SYNDROME [None]
